FAERS Safety Report 7325247-6 (Version None)
Quarter: 2011Q1

REPORT INFORMATION
  Report Type: 
  Country: None (occurrence: None)
  Receive Date: 20110302
  Receipt Date: 20110224
  Transmission Date: 20110831
  Serious: No
  Sender: FDA-Public Use
  Company Number: US-PFIZER INC-2011038129

PATIENT
  Sex: Male
  Weight: 67.12 kg

DRUGS (4)
  1. PRASUGREL [Concomitant]
     Dosage: 10 MG, DAILY
  2. LOPRESSOR [Concomitant]
     Indication: MYOCARDIAL INFARCTION
     Dosage: 25 MG, UNK
  3. LIPITOR [Suspect]
     Indication: BLOOD CHOLESTEROL INCREASED
     Dosage: 80 MG, DAILY
     Route: 048
     Dates: start: 20100801
  4. ACETYLSALICYLIC ACID [Concomitant]
     Indication: PROPHYLAXIS
     Dosage: UNK, DAILY

REACTIONS (4)
  - MUSCULAR WEAKNESS [None]
  - NECK PAIN [None]
  - ARTHRALGIA [None]
  - MUSCULOSKELETAL STIFFNESS [None]
